FAERS Safety Report 22388796 (Version 1)
Quarter: 2023Q2

REPORT INFORMATION
  Report Type: Spontaneous
  Country: US (occurrence: None)
  Receive Date: 20230530
  Receipt Date: 20230530
  Transmission Date: 20230722
  Serious: Yes (Hospitalization)
  Sender: FDA-Public Use
  Company Number: None

PATIENT
  Sex: Female

DRUGS (9)
  1. IBRANCE [Suspect]
     Active Substance: PALBOCICLIB
     Indication: Bone cancer
     Dosage: OTHER QUANTITY : 1T;?FREQUENCY : DAILY;?
     Route: 048
  2. LETROZOLE [Concomitant]
     Active Substance: LETROZOLE
  3. NICOTINE TRANSDERMAL SYSTEM [Concomitant]
     Active Substance: NICOTINE
  4. SENNA [Concomitant]
     Active Substance: SENNA LEAF\SENNOSIDES\SENNOSIDES A AND B
  5. HYDROCODONE [Concomitant]
     Active Substance: HYDROCODONE
  6. IPRATROPIUM [Concomitant]
     Active Substance: IPRATROPIUM
  7. ALBUTEROL [Concomitant]
     Active Substance: ALBUTEROL
  8. PROMETHAZINE [Concomitant]
     Active Substance: PROMETHAZINE HYDROCHLORIDE
  9. LIDOCAINE PATCH [Concomitant]
     Active Substance: LIDOCAINE

REACTIONS (5)
  - Renal pain [None]
  - Back pain [None]
  - Weight decreased [None]
  - Pneumonia [None]
  - Decreased appetite [None]
